FAERS Safety Report 9694918 (Version 2)
Quarter: 2013Q4

REPORT INFORMATION
  Report Type: Spontaneous
  Country: US (occurrence: US)
  Receive Date: 20131119
  Receipt Date: 20131127
  Transmission Date: 20140711
  Serious: No
  Sender: FDA-Public Use
  Company Number: US-PFIZER INC-2013327229

PATIENT
  Sex: Male

DRUGS (2)
  1. LYRICA [Suspect]
     Indication: FIBROMYALGIA
     Dosage: 150 MG, 2X/DAY
     Dates: start: 2012, end: 20131114
  2. CYMBALTA [Suspect]
     Indication: FIBROMYALGIA
     Dosage: 30 MG, 2X/DAY

REACTIONS (1)
  - Memory impairment [Unknown]
